FAERS Safety Report 20217130 (Version 3)
Quarter: 2022Q1

REPORT INFORMATION
  Report Type: Spontaneous
  Country: US (occurrence: US)
  Receive Date: 20211222
  Receipt Date: 20220211
  Transmission Date: 20220423
  Serious: No
  Sender: FDA-Public Use
  Company Number: US-LEADINGPHARMA-US-2021LEASPO00345

PATIENT
  Age: 74 Year
  Sex: Female
  Weight: 150 kg

DRUGS (3)
  1. LORAZEPAM [Suspect]
     Active Substance: LORAZEPAM
     Indication: Anxiety
     Route: 048
     Dates: start: 2005
  2. COBALAMIN [Suspect]
     Active Substance: COBALAMIN
     Indication: Product used for unknown indication
     Route: 065
  3. ZINC [Concomitant]
     Active Substance: ZINC
     Route: 065

REACTIONS (12)
  - Abdominal pain upper [Recovered/Resolved]
  - Product taste abnormal [Recovered/Resolved]
  - Dysgeusia [Recovered/Resolved]
  - Drug interaction [Unknown]
  - Product complaint [Unknown]
  - Oropharyngeal pain [Recovered/Resolved]
  - Chest pain [Recovered/Resolved]
  - Adverse drug reaction [Recovered/Resolved]
  - Incorrect dose administered [Unknown]
  - Nausea [Recovered/Resolved]
  - Headache [Recovered/Resolved]
  - Illness [Recovered/Resolved]

NARRATIVE: CASE EVENT DATE: 20211015
